FAERS Safety Report 15749764 (Version 1)
Quarter: 2018Q4

REPORT INFORMATION
  Report Type: Spontaneous
  Country: US (occurrence: US)
  Receive Date: 20181220
  Receipt Date: 20181220
  Transmission Date: 20190205
  Serious: Yes (Hospitalization)
  Sender: FDA-Public Use
  Company Number: None

PATIENT
  Age: 76 Year
  Sex: Male
  Weight: 112.5 kg

DRUGS (1)
  1. ISOVUE [Suspect]
     Active Substance: IOPAMIDOL
     Indication: RENAL MASS
     Dosage: ?          OTHER FREQUENCY:ONCE;?
     Route: 042
     Dates: start: 20180523

REACTIONS (5)
  - Contrast media allergy [None]
  - Dyspnoea [None]
  - Dizziness [None]
  - Emotional distress [None]
  - Cardio-respiratory arrest [None]

NARRATIVE: CASE EVENT DATE: 20180523
